FAERS Safety Report 13913406 (Version 1)
Quarter: 2017Q3

REPORT INFORMATION
  Report Type: Spontaneous
  Country: US (occurrence: US)
  Receive Date: 20170828
  Receipt Date: 20170828
  Transmission Date: 20171127
  Serious: No
  Sender: FDA-Public Use
  Company Number: US-ROCHE-1131735

PATIENT
  Sex: Male

DRUGS (3)
  1. NUTROPIN [Suspect]
     Active Substance: SOMATROPIN
     Indication: GROWTH HORMONE DEFICIENCY
     Route: 058
     Dates: start: 19960229
  2. ARGININE [Concomitant]
     Active Substance: ARGININE
     Dosage: 7.5 NG/ML
     Route: 065
     Dates: start: 19960103
  3. CLONIDINE. [Concomitant]
     Active Substance: CLONIDINE
     Dosage: 6 NG/ML
     Route: 065
     Dates: start: 19960103

REACTIONS (3)
  - Headache [Recovered/Resolved]
  - Growth retardation [Unknown]
  - Arthralgia [Recovered/Resolved]
